FAERS Safety Report 21680897 (Version 1)
Quarter: 2022Q4

REPORT INFORMATION
  Report Type: Spontaneous
  Country: US (occurrence: None)
  Receive Date: 20221202
  Receipt Date: 20221202
  Transmission Date: 20230113
  Serious: No
  Sender: FDA-Public Use
  Company Number: None

PATIENT
  Age: 90 Year
  Sex: Female
  Weight: 59.42 kg

DRUGS (30)
  1. PROMACTA [Suspect]
     Active Substance: ELTROMBOPAG OLAMINE
     Indication: Pancreatic carcinoma
     Dosage: FREQUENCY : DAILY;?
     Route: 048
  2. ALPRAZOLAM [Concomitant]
     Active Substance: ALPRAZOLAM
  3. ASPIRIN [Concomitant]
     Active Substance: ASPIRIN
  4. AZITHROMYCIN [Concomitant]
     Active Substance: AZITHROMYCIN
  5. BENZONATATE [Concomitant]
     Active Substance: BENZONATATE
  6. BUPROPION [Concomitant]
     Active Substance: BUPROPION
  7. CEPHALEXIN [Concomitant]
     Active Substance: CEPHALEXIN
  8. CINNAMON [Concomitant]
     Active Substance: CINNAMON
  9. CITALOPRAM [Concomitant]
     Active Substance: CITALOPRAM HYDROBROMIDE
  10. DIGOXIN [Concomitant]
     Active Substance: DIGOXIN
  11. DOXYCYCLINE [Concomitant]
     Active Substance: DOXYCYCLINE
  12. ESCITALOPRAM [Concomitant]
     Active Substance: ESCITALOPRAM OXALATE
  13. EVISTA [Concomitant]
     Active Substance: RALOXIFENE HYDROCHLORIDE
  14. FUROSEMIDE [Concomitant]
     Active Substance: FUROSEMIDE
  15. GABAPENTIN [Concomitant]
     Active Substance: GABAPENTIN
  16. GARLIC OIL [Concomitant]
     Active Substance: GARLIC OIL
  17. CHONDROITIN SULFATE (BOVINE)\GLUCOSAMINE SULFATE [Suspect]
     Active Substance: CHONDROITIN SULFATE (BOVINE)\GLUCOSAMINE SULFATE
  18. GRALISE [Concomitant]
     Active Substance: GABAPENTIN
  19. LANSOPRAZOLE [Concomitant]
     Active Substance: LANSOPRAZOLE
  20. METAMUCIL [Concomitant]
     Active Substance: PLANTAGO SEED
  21. METOPROLOL [Concomitant]
     Active Substance: METOPROLOL
  22. MOBIC [Concomitant]
     Active Substance: MELOXICAM
  23. NITROGLYCERIN [Suspect]
     Active Substance: NITROGLYCERIN
  24. POTASSIUM CHLORIDE [Concomitant]
     Active Substance: POTASSIUM CHLORIDE
  25. RALOXIFENE [Concomitant]
     Active Substance: RALOXIFENE
  26. SIMVASTATIN [Concomitant]
     Active Substance: SIMVASTATIN
  27. VESICARE [Concomitant]
     Active Substance: SOLIFENACIN SUCCINATE
  28. VITAMIN B COMPLEX [Concomitant]
     Active Substance: CYANOCOBALAMIN\DEXPANTHENOL\NIACINAMIDE\PYRIDOXINE HYDROCHLORIDE\RIBOFLAVIN 5^-PHOSPHATE SODIUM\THIA
  29. VITAMIN C [Concomitant]
     Active Substance: ASCORBIC ACID
  30. ZOLPIDEM [Concomitant]
     Active Substance: ZOLPIDEM TARTRATE

REACTIONS (1)
  - Platelet count decreased [None]
